FAERS Safety Report 6955736-5 (Version None)
Quarter: 2010Q3

REPORT INFORMATION
  Report Type: 
  Country: None (occurrence: None)
  Receive Date: 20100826
  Receipt Date: 20100826
  Transmission Date: 20110219
  Serious: No
  Sender: FDA-Public Use
  Company Number: None

PATIENT
  Age: 66 Year
  Sex: Male

DRUGS (5)
  1. LEVEMIR [Suspect]
     Indication: DIABETES MELLITUS
     Dosage: 100 UNITS DAILY SQ
     Dates: start: 20100815, end: 20100823
  2. CEPHALEXIN [Concomitant]
  3. LOVASTATIN [Concomitant]
  4. SINGULAIR [Concomitant]
  5. ADVAIR DISKUS 100/50 [Concomitant]

REACTIONS (2)
  - INJECTION SITE ERYTHEMA [None]
  - PRODUCT CONTAMINATION [None]
